FAERS Safety Report 6874295-9 (Version None)
Quarter: 2010Q3

REPORT INFORMATION
  Report Type: 
  Country: None (occurrence: None)
  Receive Date: 20100723
  Receipt Date: 20090512
  Transmission Date: 20110219
  Serious: No
  Sender: FDA-Public Use
  Company Number: US-PFIZER INC-2009197140

PATIENT
  Sex: Female
  Weight: 62.595 kg

DRUGS (10)
  1. CHANTIX [Suspect]
     Indication: SMOKING CESSATION THERAPY
     Dosage: 0.5 MG, 3X/DAY
     Dates: start: 20090330
  2. CHANTIX [Suspect]
     Dosage: UNK, 1X/DAY
  3. XANAX [Concomitant]
     Dosage: 0.25 MG, 2X/DAY
  4. ACETYLSALICYLIC ACID [Concomitant]
     Dosage: UNK
  5. SYNTHROID [Concomitant]
     Dosage: UNK
  6. TOPROL-XL [Concomitant]
     Dosage: UNK
  7. ONE-A-DAY [Concomitant]
     Dosage: UNK
  8. PAXIL [Concomitant]
  9. PRAVACHOL [Concomitant]
     Dosage: UNK
  10. RESTORIL [Concomitant]
     Dosage: UNK

REACTIONS (3)
  - INCORRECT DOSE ADMINISTERED [None]
  - NAUSEA [None]
  - VOMITING [None]
